FAERS Safety Report 10688093 (Version 2)
Quarter: 2015Q1

REPORT INFORMATION
  Report Type: Spontaneous
  Country: IL (occurrence: None)
  Receive Date: 20141231
  Receipt Date: 20150113
  Transmission Date: 20150720
  Serious: Yes (Hospitalization)
  Sender: FDA-Public Use
  Company Number: BD-2014-0152

PATIENT
  Age: 26 Year
  Sex: Male

DRUGS (5)
  1. PROCARBAZINE [Concomitant]
     Active Substance: PROCARBAZINE
  2. VINCRISTINE [Concomitant]
     Active Substance: VINCRISTINE
  3. CCNU (LOMUSTINE) [Concomitant]
  4. METHYLPREDISOLONE [Concomitant]
     Active Substance: METHYLPREDNISOLONE
  5. ONDANSETRON [Suspect]
     Active Substance: ONDANSETRON
     Indication: ANTIEMETIC SUPPORTIVE CARE
     Route: 042

REACTIONS (1)
  - Intestinal obstruction [None]

NARRATIVE: CASE EVENT DATE: 1995
